FAERS Safety Report 4586251-4 (Version None)
Quarter: 2005Q1

REPORT INFORMATION
  Report Type: 
  Country: None (occurrence: None)
  Receive Date: 20050125
  Receipt Date: 20041021
  Transmission Date: 20050727
  Serious: No
  Sender: FDA-Public Use
  Company Number: USA041081794

PATIENT
  Age: 87 Year
  Sex: Female
  Weight: 52 kg

DRUGS (2)
  1. FORTEO [Suspect]
     Indication: OSTEOPOROSIS
     Dates: start: 20041014
  2. FORTEO [Suspect]
     Indication: SPINAL COMPRESSION FRACTURE
     Dates: start: 20041014

REACTIONS (1)
  - RASH MACULO-PAPULAR [None]
